FAERS Safety Report 8668943 (Version 11)
Quarter: 2013Q2

REPORT INFORMATION
  Report Type: Report from Study
  Country: LB (occurrence: LB)
  Receive Date: 20120717
  Receipt Date: 20130426
  Transmission Date: 20140414
  Serious: Yes (Hospitalization, Other)
  Sender: FDA-Public Use
  Company Number: PHHY2012LB060586

PATIENT
  Age: 73 Year
  Sex: Female

DRUGS (4)
  1. GLIVEC [Suspect]
     Indication: CHRONIC MYELOID LEUKAEMIA
     Dosage: 600 MG, DAILY
     Route: 048
     Dates: start: 2004
  2. LEXOTANIL [Concomitant]
     Dosage: UNK UKN, PRN
     Route: 048
  3. TRANXENE [Concomitant]
     Dosage: UNK UKN, PRN
     Route: 048
  4. ANAFRANIL [Concomitant]
     Dosage: 2 DF, QD (1 TAB PER 12 HOUR)
     Route: 048

REACTIONS (14)
  - Anaemia [Recovering/Resolving]
  - Intervertebral disc protrusion [Recovering/Resolving]
  - Conjunctival haemorrhage [Not Recovered/Not Resolved]
  - Vaginal haemorrhage [Not Recovered/Not Resolved]
  - Urinary tract infection [Not Recovered/Not Resolved]
  - Muscle spasms [Not Recovered/Not Resolved]
  - Dry skin [Not Recovered/Not Resolved]
  - Myalgia [Not Recovered/Not Resolved]
  - Back pain [Not Recovered/Not Resolved]
  - Rash [Not Recovered/Not Resolved]
  - Anxiety [Not Recovered/Not Resolved]
  - Abdominal pain upper [Not Recovered/Not Resolved]
  - Pyrexia [Recovered/Resolved]
  - Influenza [Recovered/Resolved]
